FAERS Safety Report 24454640 (Version 2)
Quarter: 2024Q4

REPORT INFORMATION
  Report Type: Spontaneous
  Country: ZA (occurrence: ZA)
  Receive Date: 20241017
  Receipt Date: 20241018
  Transmission Date: 20250115
  Serious: No
  Sender: ROCHE
  Company Number: ZA-ROCHE-3479694

PATIENT
  Age: 20 Year
  Sex: Female
  Weight: 56.0 kg

DRUGS (1)
  1. MABTHERA [Suspect]
     Active Substance: RITUXIMAB
     Indication: Product used for unknown indication
     Route: 042
     Dates: start: 2021, end: 2022

REACTIONS (2)
  - Drug ineffective [Unknown]
  - No adverse event [Unknown]
